FAERS Safety Report 9693052 (Version 1)
Quarter: 2013Q4

REPORT INFORMATION
  Report Type: Spontaneous
  Country: US (occurrence: None)
  Receive Date: 20131115
  Receipt Date: 20131115
  Transmission Date: 20140711
  Serious: Yes (Life-Threatening, Hospitalization)
  Sender: FDA-Public Use
  Company Number: None

PATIENT
  Age: 63 Year
  Sex: Female

DRUGS (14)
  1. PRIVIGEN [Suspect]
     Dosage: 2 DOSES, 20 GRAMS X2, INTRAVENOUS
     Route: 042
  2. PRIVIGEN [Suspect]
     Dosage: 2 DOSES, 20 GRAMS X2, INTRAVENOUS
     Route: 042
  3. ACETAMINOPHEN [Concomitant]
  4. DIPHENHYDRAMINE [Concomitant]
  5. AMLODIPINE [Concomitant]
  6. ASPIRIN [Concomitant]
  7. DOMPERIDONE [Concomitant]
  8. FIORINAL [Concomitant]
  9. GLIMEPIRIDE [Concomitant]
  10. LOVASTATIN [Concomitant]
  11. PLAVIX [Concomitant]
  12. PAMELOR [Concomitant]
  13. RAMIPRIL [Concomitant]
  14. TRAMADOL [Concomitant]

REACTIONS (2)
  - Cerebrovascular accident [None]
  - Renal failure [None]
